FAERS Safety Report 5592664-4 (Version None)
Quarter: 2008Q1

REPORT INFORMATION
  Report Type: 
  Country: None (occurrence: None)
  Receive Date: 20080114
  Receipt Date: 20080107
  Transmission Date: 20080703
  Serious: Yes (Hospitalization, Other)
  Sender: FDA-Public Use
  Company Number: 2007US003183

PATIENT
  Age: 40 Year
  Sex: Male

DRUGS (6)
  1. PROGRAF [Suspect]
     Indication: LIVER TRANSPLANT
  2. AZATHIOPRINE [Concomitant]
  3. PREDNISOLONE ACETATE [Concomitant]
  4. LAMIVUDINE [Concomitant]
  5. OMEPRAZOLE [Concomitant]
  6. INSULIN (INSULIN HUMAN) [Concomitant]

REACTIONS (8)
  - CHOLANGITIS [None]
  - CHOLANGITIS CHRONIC [None]
  - DISEASE RECURRENCE [None]
  - ENTEROCOCCAL INFECTION [None]
  - ESCHERICHIA SEPSIS [None]
  - HEART RATE INCREASED [None]
  - POST PROCEDURAL BILE LEAK [None]
  - SEPTIC SHOCK [None]
